FAERS Safety Report 10266698 (Version 1)
Quarter: 2014Q2

REPORT INFORMATION
  Report Type: Spontaneous
  Country: US (occurrence: None)
  Receive Date: 20140625
  Receipt Date: 20140625
  Transmission Date: 20141212
  Serious: Yes (Disabling)
  Sender: FDA-Public Use
  Company Number: None

PATIENT
  Age: 54 Year
  Sex: Female
  Weight: 49.9 kg

DRUGS (1)
  1. LEVOFLOXACIN 750 MG DR. REDDY^S LAB [Suspect]
     Indication: SINUSITIS BACTERIAL
     Dosage: 6 PILLS ONCE DAILY TAKEN BY MOUTH
     Route: 048
     Dates: start: 20130101, end: 20130106

REACTIONS (10)
  - Neuropathy peripheral [None]
  - Panic attack [None]
  - Depression [None]
  - Tendon disorder [None]
  - Diarrhoea [None]
  - Nausea [None]
  - Weight decreased [None]
  - Autonomic neuropathy [None]
  - Abasia [None]
  - Quality of life decreased [None]
